FAERS Safety Report 5640624-7 (Version None)
Quarter: 2008Q1

REPORT INFORMATION
  Report Type: 
  Country: None (occurrence: None)
  Receive Date: 20080227
  Receipt Date: 20080215
  Transmission Date: 20080703
  Serious: Yes (Hospitalization)
  Sender: FDA-Public Use
  Company Number: US-AMGEN-STX263425

PATIENT
  Sex: Male

DRUGS (7)
  1. ENBREL [Suspect]
     Indication: PSORIASIS
     Route: 058
     Dates: start: 20030121
  2. NAPRELAN [Concomitant]
  3. ATENOLOL [Concomitant]
  4. GLUCOSAMINE [Concomitant]
  5. RELAFEN [Concomitant]
  6. HYDROCHLOROTHIAZIDE [Concomitant]
  7. ACCUPRIL [Concomitant]

REACTIONS (3)
  - ARTICULAR CALCIFICATION [None]
  - OSTEOARTHRITIS [None]
  - PSORIASIS [None]
